FAERS Safety Report 19432634 (Version 2)
Quarter: 2021Q2

REPORT INFORMATION
  Report Type: Spontaneous
  Country: CA (occurrence: CA)
  Receive Date: 20210618
  Receipt Date: 20210624
  Transmission Date: 20210717
  Serious: Yes (Hospitalization, Other)
  Sender: FDA-Public Use
  Company Number: CA-SUN PHARMACEUTICAL INDUSTRIES LTD-2021R1-300197

PATIENT
  Age: 17 Year
  Sex: Female

DRUGS (1)
  1. OLANZAPINE. [Suspect]
     Active Substance: OLANZAPINE
     Indication: PRODUCT USED FOR UNKNOWN INDICATION
     Dosage: UNK
     Route: 065

REACTIONS (8)
  - Vomiting [Recovered/Resolved]
  - Abnormal behaviour [Recovered/Resolved]
  - Abdominal pain [Recovered/Resolved]
  - Overdose [Unknown]
  - Slow response to stimuli [Recovered/Resolved]
  - Agitation [Recovered/Resolved]
  - Headache [Recovered/Resolved]
  - Hallucination [Recovered/Resolved]
